FAERS Safety Report 5321385-8 (Version None)
Quarter: 2007Q2

REPORT INFORMATION
  Report Type: 
  Country: None (occurrence: None)
  Receive Date: 20070510
  Receipt Date: 20070426
  Transmission Date: 20071010
  Serious: Yes (Other)
  Sender: FDA-Public Use
  Company Number: ZA-GENENTECH-241070

PATIENT
  Age: 40 Year
  Sex: Female

DRUGS (2)
  1. TRASTUZUMAB [Suspect]
     Indication: BREAST CANCER
     Dosage: 520 MG, SINGLE
     Route: 042
     Dates: start: 20051003
  2. TRASTUZUMAB [Suspect]
     Dosage: 390 MG, Q3W
     Dates: start: 20051027, end: 20060927

REACTIONS (3)
  - ABORTION SPONTANEOUS [None]
  - DRUG EXPOSURE DURING PREGNANCY [None]
  - PREGNANCY [None]
